FAERS Safety Report 24862671 (Version 1)
Quarter: 2025Q1

REPORT INFORMATION
  Report Type: Spontaneous
  Country: US (occurrence: US)
  Receive Date: 20250120
  Receipt Date: 20250120
  Transmission Date: 20250409
  Serious: No
  Sender: BLUEPRINT MEDICINES
  Company Number: US-Blueprint Medicines Corporation-2025-AER-00088

PATIENT
  Age: 33 Year
  Sex: Male

DRUGS (1)
  1. AYVAKIT [Suspect]
     Active Substance: AVAPRITINIB
     Indication: Mastocytoma
     Route: 048

REACTIONS (5)
  - Sinusitis [Not Recovered/Not Resolved]
  - Mastocytoma [Not Recovered/Not Resolved]
  - Condition aggravated [Not Recovered/Not Resolved]
  - Brain fog [Not Recovered/Not Resolved]
  - Food intolerance [Not Recovered/Not Resolved]

NARRATIVE: CASE EVENT DATE: 20241201
